FAERS Safety Report 7724379-8 (Version None)
Quarter: 2011Q3

REPORT INFORMATION
  Report Type: 
  Country: None (occurrence: None)
  Receive Date: 20110901
  Receipt Date: 20110829
  Transmission Date: 20111222
  Serious: Yes (Disabling)
  Sender: FDA-Public Use
  Company Number: JP-ASTRAZENECA-2011SE51825

PATIENT
  Age: 62 Year
  Sex: Male

DRUGS (7)
  1. CANDESARTAN CILEXETIL [Suspect]
     Indication: HYPERTENSION
     Route: 048
     Dates: start: 20100101, end: 20110414
  2. CISPLATIN [Suspect]
     Route: 042
     Dates: start: 20110407, end: 20110407
  3. VALSARTAN [Suspect]
     Indication: HYPERTENSION
     Route: 048
     Dates: start: 20100101, end: 20110414
  4. FLUOROURACIL WHINTROP [Concomitant]
     Route: 042
     Dates: start: 20110407, end: 20110407
  5. CISPLATIN [Suspect]
     Indication: LARYNGEAL CANCER RECURRENT
     Route: 042
     Dates: start: 20110107, end: 20110211
  6. FLUOROURACIL WHINTROP [Concomitant]
     Indication: LARYNGEAL CANCER RECURRENT
     Route: 042
     Dates: start: 20110107, end: 20110211
  7. ERBITUX [Concomitant]
     Indication: LARYNGEAL CANCER RECURRENT
     Route: 042
     Dates: start: 20110407, end: 20110407

REACTIONS (1)
  - RENAL TUBULAR NECROSIS [None]
